FAERS Safety Report 4448546-4 (Version None)
Quarter: 2004Q3

REPORT INFORMATION
  Report Type: 
  Country: None (occurrence: None)
  Receive Date: 20040909
  Receipt Date: 20040820
  Transmission Date: 20050211
  Serious: Yes (Hospitalization, Other)
  Sender: FDA-Public Use
  Company Number: EWC040840343

PATIENT
  Age: 36 Year
  Sex: Female

DRUGS (4)
  1. FLUOXETINE [Suspect]
     Indication: WEIGHT CONTROL
     Dates: start: 20040401, end: 20040430
  2. DIETHYLPROPION HCL [Concomitant]
  3. DIAZEPAM [Concomitant]
  4. RANITIDINE [Concomitant]

REACTIONS (12)
  - ANOREXIA [None]
  - DEPRESSED MOOD [None]
  - DIARRHOEA [None]
  - DISTURBANCE IN ATTENTION [None]
  - DRUG SCREEN POSITIVE [None]
  - DRUG WITHDRAWAL SYNDROME [None]
  - FATIGUE [None]
  - NAUSEA [None]
  - RESTLESSNESS [None]
  - SELF-MEDICATION [None]
  - TREMOR [None]
  - VOMITING [None]
